FAERS Safety Report 15728685 (Version 3)
Quarter: 2019Q1

REPORT INFORMATION
  Report Type: Spontaneous
  Country: US (occurrence: US)
  Receive Date: 20181217
  Receipt Date: 20190215
  Transmission Date: 20190417
  Serious: Yes (Other)
  Sender: FDA-Public Use
  Company Number: US-ASTRAZENECA-2018SF55917

PATIENT
  Sex: Female

DRUGS (2)
  1. FASLODEX [Suspect]
     Active Substance: FULVESTRANT
     Indication: BREAST CANCER FEMALE
     Route: 030
     Dates: start: 20181003
  2. IBRANCE [Suspect]
     Active Substance: PALBOCICLIB
     Indication: BREAST CANCER FEMALE
     Route: 048
     Dates: start: 20181003

REACTIONS (10)
  - Arthralgia [Unknown]
  - Dyspnoea [Recovered/Resolved]
  - Constipation [Unknown]
  - Alopecia [Not Recovered/Not Resolved]
  - Pleural effusion [Unknown]
  - Hepatic neoplasm [Unknown]
  - Platelet count decreased [Unknown]
  - Neutropenia [Unknown]
  - Tumour marker increased [Unknown]
  - Dyspepsia [Recovered/Resolved]
